FAERS Safety Report 4600402-4 (Version None)
Quarter: 2005Q1

REPORT INFORMATION
  Report Type: 
  Country: None (occurrence: None)
  Receive Date: 20050304
  Receipt Date: 20050222
  Transmission Date: 20050727
  Serious: Yes (Hospitalization, Other)
  Sender: FDA-Public Use
  Company Number: USA-2004-0017038

PATIENT
  Age: 50 Year
  Sex: Male

DRUGS (19)
  1. MS CONTIN [Suspect]
     Dosage: 45 MG
  2. MORPHINE SULFATE [Suspect]
     Dosage: 15 MG, Q6H
  3. XANAX [Concomitant]
  4. INSULIN [Concomitant]
  5. VICODIN [Concomitant]
  6. PLAVIX [Concomitant]
  7. SOMA [Concomitant]
  8. VALIUM [Concomitant]
  9. PAXIL [Concomitant]
  10. PHENERGAN [Concomitant]
  11. LASIX [Concomitant]
  12. PANCREASE (PANCRELIPASE) [Concomitant]
  13. ZOLOFT [Concomitant]
  14. ASPIRIN [Concomitant]
  15. NEXIUM [Concomitant]
  16. TRENTAI, ^HOECHST^ (PENTOXIFYLLINE) [Concomitant]
  17. CIPRO [Concomitant]
  18. ZOLPIDEM TARTRATE [Concomitant]
  19. DILAUDID [Concomitant]

REACTIONS (34)
  - ABDOMINAL PAIN [None]
  - ANGER [None]
  - ANOREXIA [None]
  - ANXIETY [None]
  - BLADDER CANCER RECURRENT [None]
  - BLOOD GLUCOSE INCREASED [None]
  - BLOOD URINE [None]
  - CACHEXIA [None]
  - CANDIDIASIS [None]
  - CHEST PAIN [None]
  - CHOKING [None]
  - COUGH [None]
  - DIARRHOEA [None]
  - DIZZINESS [None]
  - DYSPHAGIA [None]
  - DYSPHONIA [None]
  - DYSPNOEA [None]
  - EAR PAIN [None]
  - EATING DISORDER [None]
  - FAILURE TO THRIVE [None]
  - FEELING ABNORMAL [None]
  - IRRITABILITY [None]
  - JEJUNOSTOMY [None]
  - NAUSEA [None]
  - NECK MASS [None]
  - NIGHT SWEATS [None]
  - PALPITATIONS [None]
  - PHARYNGOLARYNGEAL PAIN [None]
  - PNEUMONIA [None]
  - PYREXIA [None]
  - SOMNOLENCE [None]
  - VISION BLURRED [None]
  - VOMITING [None]
  - WEIGHT DECREASED [None]
